FAERS Safety Report 20987266 (Version 2)
Quarter: 2022Q3

REPORT INFORMATION
  Report Type: Spontaneous
  Country: HU (occurrence: HU)
  Receive Date: 20220621
  Receipt Date: 20220729
  Transmission Date: 20221027
  Serious: Yes (Death, Other)
  Sender: FDA-Public Use
  Company Number: HU-002147023-NVSC2022HU136197

PATIENT
  Age: 71 Year
  Sex: Male

DRUGS (7)
  1. AZACITIDINE [Suspect]
     Active Substance: AZACITIDINE
     Indication: Acute myeloid leukaemia
     Dosage: 70 MG/M2
     Route: 065
     Dates: start: 2021
  2. NILOTINIB [Suspect]
     Active Substance: NILOTINIB
     Indication: Philadelphia positive chronic myeloid leukaemia
     Dosage: 2X150 MG
     Route: 065
     Dates: start: 2021
  3. NILOTINIB [Suspect]
     Active Substance: NILOTINIB
     Dosage: 2X 300 MG
     Route: 065
     Dates: start: 202009
  4. VENETOCLAX [Suspect]
     Active Substance: VENETOCLAX
     Indication: Acute myeloid leukaemia
     Dosage: 400 MG, QD
     Route: 065
     Dates: start: 2021
  5. HYDROXYUREA [Concomitant]
     Active Substance: HYDROXYUREA
     Indication: Cytoreductive surgery
     Dosage: UNK
     Route: 065
  6. LENALIDOMIDE [Concomitant]
     Active Substance: LENALIDOMIDE
     Indication: Myelodysplastic syndrome
     Dosage: 10 MG, QD
     Route: 065
     Dates: start: 202010
  7. LENALIDOMIDE [Concomitant]
     Active Substance: LENALIDOMIDE
     Dosage: UNK
     Route: 065
     Dates: start: 2021

REACTIONS (1)
  - Febrile neutropenia [Fatal]
